FAERS Safety Report 10035533 (Version 1)
Quarter: 2014Q1

REPORT INFORMATION
  Report Type: Spontaneous
  Country: DE (occurrence: None)
  Receive Date: 20140321
  Receipt Date: 20140321
  Transmission Date: 20141002
  Serious: Yes (Other)
  Sender: FDA-Public Use
  Company Number: 1403-0540

PATIENT
  Age: 50 Year
  Sex: Female

DRUGS (1)
  1. EYLEA [Suspect]
     Indication: AGE-RELATED MACULAR DEGENERATION
     Route: 047
     Dates: start: 20140114, end: 20140114

REACTIONS (5)
  - Visual acuity reduced [None]
  - Paraesthesia [None]
  - Muscle twitching [None]
  - Headache [None]
  - Haemorrhage [None]
